FAERS Safety Report 6806995-0 (Version None)
Quarter: 2010Q2

REPORT INFORMATION
  Report Type: 
  Country: None (occurrence: None)
  Receive Date: 20100629
  Receipt Date: 20080528
  Transmission Date: 20101027
  Serious: No
  Sender: FDA-Public Use
  Company Number: US-PFIZER INC-2008046168

PATIENT
  Sex: Male
  Weight: 59.09 kg

DRUGS (3)
  1. XANAX [Suspect]
     Indication: ANXIETY
     Dates: start: 20080101
  2. XANAX [Suspect]
     Indication: SLEEP DISORDER
  3. RESTORIL [Concomitant]

REACTIONS (2)
  - FEELING HOT [None]
  - OEDEMA PERIPHERAL [None]
